FAERS Safety Report 15301618 (Version 2)
Quarter: 2018Q3

REPORT INFORMATION
  Report Type: Spontaneous
  Country: US (occurrence: US)
  Receive Date: 20180821
  Receipt Date: 20180831
  Transmission Date: 20181010
  Serious: Yes (Other)
  Sender: FDA-Public Use
  Company Number: US-PFIZER INC-2018331401

PATIENT
  Age: 52 Year
  Sex: Male

DRUGS (21)
  1. PROPOFOL. [Suspect]
     Active Substance: PROPOFOL
     Indication: INDUCTION OF ANAESTHESIA
     Dosage: 200 MG, UNK
     Route: 042
  2. SALINE /00075401/ [Concomitant]
     Active Substance: SODIUM CHLORIDE
     Dosage: UNK
     Route: 042
  3. SODIUM BICARBONATE. [Concomitant]
     Active Substance: SODIUM BICARBONATE
     Dosage: 2 DF, UNK, (2 AMPULES OF SODIUM BICARBONATE, 50 MEQ)
  4. ROCURONIUM BROMIDE. [Suspect]
     Active Substance: ROCURONIUM BROMIDE
     Dosage: 140 MG, UNK (AROUND 4:10 PM)
     Route: 042
  5. DESFLURANE. [Suspect]
     Active Substance: DESFLURANE
     Indication: MAINTENANCE OF ANAESTHESIA
     Dosage: 6 %, UNK
  6. SUCCINYLCHOLINE [Suspect]
     Active Substance: SUCCINYLCHOLINE
     Indication: INDUCTION OF ANAESTHESIA
     Dosage: 120 MG, UNK
     Route: 042
  7. DESFLURANE. [Suspect]
     Active Substance: DESFLURANE
     Dosage: 5.5 %, BY 4:15 PM
  8. REGLAN [Concomitant]
     Active Substance: METOCLOPRAMIDE HYDROCHLORIDE
     Dosage: 10 MG, UNK
     Route: 042
  9. RANITIDINE. [Concomitant]
     Active Substance: RANITIDINE
     Dosage: 50 MG, UNK (START TIME WAS 4.32 PM)
     Route: 042
  10. FENTANYL. [Suspect]
     Active Substance: FENTANYL
     Dosage: 250 UG, UNK
     Route: 042
  11. CEFAZOLIN [Concomitant]
     Active Substance: CEFAZOLIN
     Indication: ANTIBIOTIC THERAPY
     Dosage: 1 G, UNK (WAS ADMINISTERED AT 4:20 PM)
     Route: 042
  12. FENTANYL. [Suspect]
     Active Substance: FENTANYL
     Dosage: 150 UG, UNK
     Route: 042
  13. DANTROLENE SODIUM. [Concomitant]
     Active Substance: DANTROLENE SODIUM
     Indication: MAINTENANCE OF ANAESTHESIA
     Dosage: 200 MG, UNK (COMMENCED AROUND 5:50 PM)
  14. EPINEPHRINE. [Concomitant]
     Active Substance: EPINEPHRINE
     Dosage: UNK
  15. INSULIN [Concomitant]
     Active Substance: INSULIN NOS
     Dosage: 10 IU, UNK
  16. CALCIUM CHLORIDE. [Concomitant]
     Active Substance: CALCIUM CHLORIDE
     Dosage: 1 DF, UNK, (1 AMPULE)
  17. ROCURONIUM BROMIDE. [Suspect]
     Active Substance: ROCURONIUM BROMIDE
     Indication: INDUCTION OF ANAESTHESIA
     Dosage: 5 MG, UNK
     Route: 042
  18. FENTANYL. [Suspect]
     Active Substance: FENTANYL
     Indication: INDUCTION OF ANAESTHESIA
     Dosage: 150 UG, UNK
     Route: 042
  19. MIDAZOLAM [Suspect]
     Active Substance: MIDAZOLAM HYDROCHLORIDE
     Indication: INDUCTION OF ANAESTHESIA
     Dosage: 2 MG, UNK
     Route: 042
  20. DECADRON [Concomitant]
     Active Substance: DEXAMETHASONE
     Dosage: 8 MG, UNK (ADMINISTERED AT 4:45 PM)
     Route: 042
  21. LIDOCAINE. [Concomitant]
     Active Substance: LIDOCAINE
     Dosage: 9 ML, UNK

REACTIONS (1)
  - Hyperthermia malignant [Recovered/Resolved]
